FAERS Safety Report 6977200-X (Version None)
Quarter: 2010Q3

REPORT INFORMATION
  Report Type: 
  Country: None (occurrence: None)
  Receive Date: 20100910
  Receipt Date: 20100831
  Transmission Date: 20110219
  Serious: Yes (Hospitalization)
  Sender: FDA-Public Use
  Company Number: JP-SHIRE-SPV1-2010-00602

PATIENT

DRUGS (20)
  1. LANTHANUM CARBONATE [Suspect]
     Indication: HYPERPHOSPHATAEMIA
     Route: 048
     Dates: start: 20090608, end: 20090621
  2. LANTHANUM CARBONATE [Suspect]
     Route: 048
     Dates: start: 20090622, end: 20091202
  3. MODACIN [Suspect]
     Indication: PERITONITIS
     Route: 042
  4. CEFAMEZIN ALPHA [Suspect]
     Indication: PERITONITIS
     Route: 042
  5. CALCIUM CARBONATE [Concomitant]
     Indication: HYPERPHOSPHATAEMIA
     Dosage: 6 DF, UNK
  6. CALCIUM CARBONATE [Concomitant]
     Dosage: 3 DF, UNK
     Dates: start: 20090608
  7. FULSTAN [Concomitant]
     Dosage: .3 UG, UNK
     Route: 048
     Dates: start: 20090608, end: 20090706
  8. FULSTAN [Concomitant]
     Dosage: .15 UG, UNK
     Route: 048
     Dates: start: 20090707
  9. VITAMEDIN                          /00176001/ [Concomitant]
     Dosage: 2 DF, UNK
     Route: 048
  10. OLMETEC [Concomitant]
     Dosage: 40 MG, UNK
     Route: 048
  11. GASTROM [Concomitant]
     Dosage: 2 DF, UNK
     Route: 048
  12. LASIX [Concomitant]
     Dosage: 80 MG, UNK
     Route: 048
  13. ATELEC [Concomitant]
     Dosage: 20 MG, UNK
     Route: 048
  14. TAKEPRON [Concomitant]
     Dosage: 15 MG, UNK
     Route: 048
  15. LIPITOR [Concomitant]
     Dosage: 5 MG, UNK
     Route: 048
  16. CINAL                              /00257901/ [Concomitant]
     Dosage: 200 MG, UNK
     Route: 048
  17. COTRIM [Concomitant]
     Dosage: 1 DF, UNK
     Route: 048
  18. ADALAT CC [Concomitant]
     Dosage: 40 MG, UNK
     Route: 048
  19. FOLIAMIN [Concomitant]
     Dosage: 1 DF, UNK
     Route: 048
  20. ARTIST [Concomitant]
     Dosage: 5 MG, UNK
     Route: 048

REACTIONS (6)
  - HEPATIC FUNCTION ABNORMAL [None]
  - HYPERPARATHYROIDISM SECONDARY [None]
  - NAUSEA [None]
  - OEDEMA [None]
  - PERITONITIS [None]
  - VOMITING [None]
